FAERS Safety Report 4851702-4 (Version None)
Quarter: 2005Q4

REPORT INFORMATION
  Report Type: 
  Country: None (occurrence: None)
  Receive Date: 20051209
  Receipt Date: 20051209
  Transmission Date: 20060501
  Serious: Yes (Hospitalization)
  Sender: FDA-Public Use
  Company Number: None

PATIENT
  Age: 85 Year
  Sex: Female
  Weight: 52.4 kg

DRUGS (2)
  1. GLYBURIDE [Suspect]
     Indication: DIABETES MELLITUS NON-INSULIN-DEPENDENT
     Dosage: 20MG BID PO
     Route: 048
  2. GATIFLOXACIN [Suspect]
     Dosage: DAILY IV
     Route: 042
     Dates: start: 20051203, end: 20051206

REACTIONS (3)
  - BLOOD GLUCOSE DECREASED [None]
  - SEPSIS [None]
  - URINARY TRACT INFECTION [None]
